FAERS Safety Report 7861272-4 (Version None)
Quarter: 2011Q4

REPORT INFORMATION
  Report Type: 
  Country: None (occurrence: None)
  Receive Date: 20111027
  Receipt Date: 20111011
  Transmission Date: 20120403
  Serious: Yes (Life-Threatening)
  Sender: FDA-Public Use
  Company Number: US-GILEAD-2011-0036768

PATIENT
  Age: 34 Year
  Sex: Female

DRUGS (6)
  1. COTRIM [Concomitant]
  2. DEPOMEDROXYPROGESTERONE ACETATE [Concomitant]
     Dates: start: 20090617, end: 20101220
  3. EMTRICITABINE/TENOFOVIR DISOPROXIL FUMARATE [Suspect]
     Dates: start: 20090903, end: 20101220
  4. ALBENDAZOLE [Concomitant]
  5. ACYCLOVIR [Concomitant]
  6. ERYTHROMYCIN [Concomitant]

REACTIONS (2)
  - MATERNAL EXPOSURE DURING PREGNANCY [None]
  - ABORTION SPONTANEOUS [None]
